FAERS Safety Report 10045758 (Version 2)
Quarter: 2014Q2

REPORT INFORMATION
  Report Type: Spontaneous
  Country: US (occurrence: US)
  Receive Date: 20140328
  Receipt Date: 20140410
  Transmission Date: 20141212
  Serious: Yes (Hospitalization)
  Sender: FDA-Public Use
  Company Number: US-009507513-1403USA011578

PATIENT
  Sex: Female

DRUGS (4)
  1. COSOPT [Suspect]
     Indication: GLAUCOMA
     Dosage: 1 DROP IN EACH EYE 2 TO 3 TIMES A DAY
     Route: 047
     Dates: start: 2011
  2. DORZOLAMIDE HYDROCHLORIDE (+) TIMOLOL MALEATE [Suspect]
     Route: 047
  3. PRILOSEC [Concomitant]
     Route: 048
  4. MUCINEX [Suspect]
     Dosage: UNK

REACTIONS (5)
  - Cardiac disorder [Not Recovered/Not Resolved]
  - Drug ineffective [Not Recovered/Not Resolved]
  - Ocular hyperaemia [Not Recovered/Not Resolved]
  - Drug dose omission [Unknown]
  - Product dropper issue [Unknown]
